FAERS Safety Report 4720465-5 (Version None)
Quarter: 2005Q3

REPORT INFORMATION
  Report Type: 
  Country: None (occurrence: None)
  Receive Date: 20050721
  Receipt Date: 20040707
  Transmission Date: 20060218
  Serious: No
  Sender: FDA-Public Use
  Company Number: US-BRISTOL-MYERS SQUIBB COMPANY-12633996

PATIENT
  Age: 47 Year
  Sex: Female
  Weight: 100 kg

DRUGS (5)
  1. PRAVACHOL [Suspect]
     Indication: BLOOD CHOLESTEROL INCREASED
     Route: 048
     Dates: start: 20030101
  2. GLUCOVANCE [Suspect]
     Indication: DIABETES MELLITUS
  3. AVANDAMET [Concomitant]
  4. LANTUS [Concomitant]
  5. XANAX [Concomitant]

REACTIONS (3)
  - DYSGEUSIA [None]
  - ORAL DISCOMFORT [None]
  - TONGUE BLISTERING [None]
